FAERS Safety Report 11437826 (Version 1)
Quarter: 2015Q3

REPORT INFORMATION
  Report Type: Spontaneous
  Country: GB (occurrence: US)
  Receive Date: 20150831
  Receipt Date: 20150831
  Transmission Date: 20151125
  Serious: Yes (Death, Other)
  Sender: FDA-Public Use
  Company Number: GB-009507513-1508USA013165

PATIENT

DRUGS (1)
  1. SINGULAIR [Suspect]
     Active Substance: MONTELUKAST SODIUM
     Route: 048

REACTIONS (2)
  - Completed suicide [Fatal]
  - Anger [Unknown]

NARRATIVE: CASE EVENT DATE: 2008
